FAERS Safety Report 8052817 (Version 4)
Quarter: 2014Q2

REPORT INFORMATION
  Report Type: Spontaneous
  Country: US (occurrence: US)
  Receive Date: 20110725
  Receipt Date: 20140625
  Transmission Date: 20141212
  Serious: Yes (Hospitalization)
  Sender: FDA-Public Use
  Company Number: US-GLAXOSMITHKLINE-A0937761A

PATIENT
  Age: 52 Year
  Sex: Male

DRUGS (8)
  1. AVANDIA [Suspect]
     Indication: DIABETES MELLITUS
     Dosage: 2MG PER DAY
     Route: 048
     Dates: start: 20051130
  2. AMARYL [Concomitant]
  3. ELAVIL [Concomitant]
  4. GLUCOPHAGE [Concomitant]
  5. INSULIN [Concomitant]
  6. ALTACE [Concomitant]
  7. LIPITOR [Concomitant]
  8. LOPRESSOR [Concomitant]

REACTIONS (1)
  - Myocardial infarction [Not Recovered/Not Resolved]
